APPROVED DRUG PRODUCT: GYNE-LOTRIMIN
Active Ingredient: CLOTRIMAZOLE
Strength: 1% **Federal Register determination that product was not discontinued or withdrawn for safety or effectiveness reasons**
Dosage Form/Route: CREAM;VAGINAL
Application: N018052 | Product #002
Applicant: BAYER HEALTHCARE LLC
Approved: Nov 30, 1990 | RLD: Yes | RS: No | Type: DISCN